FAERS Safety Report 18039546 (Version 4)
Quarter: 2020Q3

REPORT INFORMATION
  Report Type: Spontaneous
  Country: US (occurrence: US)
  Receive Date: 20200717
  Receipt Date: 20200908
  Transmission Date: 20201103
  Serious: Yes (Life-Threatening, Other)
  Sender: FDA-Public Use
  Company Number: US-ASTRAZENECA-2020SE89101

PATIENT
  Age: 75 Year
  Sex: Female
  Weight: 88.5 kg

DRUGS (5)
  1. SYMBICORT [Suspect]
     Active Substance: BUDESONIDE\FORMOTEROL FUMARATE DIHYDRATE
     Indication: DYSPNOEA
     Dosage: WAS USING SYMBICORT AS NEEDED AS REQUIRED
     Route: 055
  2. ELIQUIS [Concomitant]
     Active Substance: APIXABAN
     Indication: CARDIAC ASSISTANCE DEVICE USER
     Dosage: DOSE AND FREQUENCY UNKNOWN
     Route: 065
     Dates: start: 2020
  3. SYMBICORT [Suspect]
     Active Substance: BUDESONIDE\FORMOTEROL FUMARATE DIHYDRATE
     Indication: DYSPNOEA
     Dosage: GENERIC, TWO PUFFS, BID AS REQUIRED
     Route: 055
     Dates: start: 2020
  4. VITAMIN D [Concomitant]
     Active Substance: VITAMIN D NOS
     Dosage: DOSE AND FREQUENCY UNKNOWN
     Route: 065
  5. SYMBICORT [Suspect]
     Active Substance: BUDESONIDE\FORMOTEROL FUMARATE DIHYDRATE
     Indication: DYSPNOEA
     Dosage: 160/4.5 MCG, 2 PUFFS, BID
     Route: 055

REACTIONS (19)
  - Near death experience [Unknown]
  - Intervertebral disc disorder [Unknown]
  - Neck pain [Unknown]
  - Limb discomfort [Unknown]
  - Intentional product misuse [Unknown]
  - Drug delivery system issue [Unknown]
  - Intentional device misuse [Unknown]
  - Hypersensitivity [Unknown]
  - Wrong technique in device usage process [Unknown]
  - Feeling abnormal [Unknown]
  - Fear [Unknown]
  - Device malfunction [Unknown]
  - Dyspnoea [Unknown]
  - Cataract [Unknown]
  - Back pain [Unknown]
  - Wheezing [Unknown]
  - Asthma [Unknown]
  - Drug dose omission by device [Unknown]
  - Body height decreased [Unknown]

NARRATIVE: CASE EVENT DATE: 2018
